FAERS Safety Report 6066151-3 (Version None)
Quarter: 2009Q1

REPORT INFORMATION
  Report Type: 
  Country: None (occurrence: None)
  Receive Date: 20090130
  Receipt Date: 20090119
  Transmission Date: 20090719
  Serious: Yes (Death)
  Sender: FDA-Public Use
  Company Number: A-CH2009-23499

PATIENT
  Age: 57 Year
  Sex: Male
  Weight: 54 kg

DRUGS (14)
  1. TRACLEER [Suspect]
     Indication: PULMONARY HYPERTENSION
     Dosage: 125 MG, BID, ORAL; 62.5 MG, BID, ORAL
     Route: 048
     Dates: start: 20050308, end: 20050405
  2. TRACLEER [Suspect]
     Indication: PULMONARY HYPERTENSION
     Dosage: 125 MG, BID, ORAL; 62.5 MG, BID, ORAL
     Route: 048
     Dates: start: 20050406, end: 20081224
  3. PROSTACYCLIN (EPOPROSTENOL) [Concomitant]
  4. SILDENAFIL TABLET [Concomitant]
  5. BUMETANIDE [Concomitant]
  6. DUOVENT (IPRATROPIUM BROMIDE, FENOTEROL HYDROBROMIDE) [Concomitant]
  7. SERETIDE (BLUTICASONE PROPIONATE, SALMETEROL ZINAFOATE) [Concomitant]
  8. SPIRONOLACTONE [Concomitant]
  9. ACETYLCYSTEINE [Concomitant]
  10. MONTELUKAST SODIUM [Concomitant]
  11. MOMETASONE FUROATE [Concomitant]
  12. FENPROCOUMON RATIOPHARM (PHENPROCOUMON) [Concomitant]
  13. ZOLPIDEM (ZOLIPIDEM TARTRATE) [Concomitant]
  14. PARACETAMOL (PARACETAMOL) [Concomitant]

REACTIONS (1)
  - MYOCARDIAL INFARCTION [None]
